FAERS Safety Report 11677000 (Version 2)
Quarter: 2015Q4

REPORT INFORMATION
  Report Type: Report from Study
  Country: US (occurrence: US)
  Receive Date: 20151028
  Receipt Date: 20151123
  Transmission Date: 20160304
  Serious: Yes (Other)
  Sender: FDA-Public Use
  Company Number: US-AMGEN-USASL2015112060

PATIENT
  Age: 36 Year
  Sex: Female

DRUGS (4)
  1. FLU VACCINE [Concomitant]
     Active Substance: INFLUENZA VIRUS VACCINE
     Dosage: UNK
     Route: 030
     Dates: start: 20141001, end: 20141001
  2. ENBREL [Suspect]
     Active Substance: ETANERCEPT
     Indication: COGAN^S SYNDROME
     Dosage: 50 MG, QWK
     Route: 058
     Dates: start: 2009
  3. FOLIC ACID. [Concomitant]
     Active Substance: FOLIC ACID
     Dosage: 100 MG, DAILY
     Route: 048
  4. METHYLPREDNISOLONE. [Concomitant]
     Active Substance: METHYLPREDNISOLONE
     Dosage: UNK
     Route: 048
     Dates: start: 20141001, end: 20141009

REACTIONS (4)
  - Gastroenteritis viral [Unknown]
  - Rubella antibody negative [Unknown]
  - Pregnancy [Recovered/Resolved]
  - Pneumonia [Unknown]

NARRATIVE: CASE EVENT DATE: 201411
